FAERS Safety Report 15129475 (Version 1)
Quarter: 2018Q3

REPORT INFORMATION
  Report Type: Spontaneous
  Country: US (occurrence: US)
  Receive Date: 20180615
  Receipt Date: 20180615
  Transmission Date: 20181010
  Serious: Yes (Life-Threatening, Hospitalization, Disabling)
  Sender: FDA-Public Use
  Company Number: None

PATIENT
  Age: 30 Year
  Sex: Female
  Weight: 61.23 kg

DRUGS (1)
  1. NEXPLANON [Suspect]
     Active Substance: ETONOGESTREL
     Dates: start: 20180409, end: 20180608

REACTIONS (10)
  - Thrombosis [None]
  - Tremor [None]
  - Nausea [None]
  - Dizziness [None]
  - Feeling hot [None]
  - Vaginal haemorrhage [None]
  - Seizure [None]
  - Fall [None]
  - Retching [None]
  - Dyspnoea [None]

NARRATIVE: CASE EVENT DATE: 20180520
